FAERS Safety Report 8610639-5 (Version None)
Quarter: 2012Q3

REPORT INFORMATION
  Report Type: 
  Country: None (occurrence: None)
  Receive Date: 20120822
  Receipt Date: 20120810
  Transmission Date: 20120928
  Serious: Yes (Hospitalization)
  Sender: FDA-Public Use
  Company Number: FR-JNJFOC-20120808840

PATIENT
  Age: 70 Year
  Sex: Female

DRUGS (15)
  1. CETIRIZINE HCL [Suspect]
     Indication: PAIN
     Route: 048
  2. ACETAMINOPHEN W/ CODEINE [Suspect]
     Indication: PAIN
     Route: 048
     Dates: end: 20120420
  3. HUMALOG [Concomitant]
     Route: 065
  4. FUROSEMIDE [Concomitant]
     Indication: PRODUCT USED FOR UNKNOWN INDICATION
     Route: 065
  5. LYRICA [Concomitant]
     Route: 065
     Dates: start: 20120426, end: 20120427
  6. TRAMADOL HCL [Concomitant]
     Route: 065
     Dates: start: 20120426, end: 20120427
  7. LANTUS [Concomitant]
     Route: 065
  8. ACETAMINOPHEN AND CODEINE PHOSPHATE [Suspect]
     Route: 048
     Dates: start: 20120420, end: 20120426
  9. CLONAZEPAM [Suspect]
     Indication: PAIN
     Route: 048
     Dates: start: 20120420
  10. ACETAMINOPHEN AND CODEINE PHOSPHATE [Suspect]
     Indication: PAIN
     Route: 048
     Dates: start: 20120427, end: 20120519
  11. FLECAINIDE ACETATE [Concomitant]
     Route: 065
  12. LEVOTHYROXINE SODIUM [Concomitant]
     Route: 065
  13. REMICADE [Concomitant]
     Route: 065
     Dates: start: 20120516
  14. CETIRIZINE HCL [Suspect]
     Route: 048
  15. PREDNISOLONE [Concomitant]
     Route: 065

REACTIONS (5)
  - CHOLESTASIS [None]
  - CYTOLYTIC HEPATITIS [None]
  - OFF LABEL USE [None]
  - WRONG DRUG ADMINISTERED [None]
  - PYODERMA GANGRENOSUM [None]
